FAERS Safety Report 6360494-1 (Version None)
Quarter: 2009Q3

REPORT INFORMATION
  Report Type: 
  Country: None (occurrence: None)
  Receive Date: 20090917
  Receipt Date: 20090910
  Transmission Date: 20100115
  Serious: Yes (Hospitalization, Disabling, Other)
  Sender: FDA-Public Use
  Company Number: US-MERCK-0909USA00175

PATIENT
  Age: 85 Year
  Sex: Female

DRUGS (7)
  1. FOSAMAX [Suspect]
     Indication: OSTEOPOROSIS PROPHYLAXIS
     Route: 048
     Dates: start: 19890101, end: 20090101
  2. LISINOPRIL [Concomitant]
     Route: 048
  3. AMLODIPINE [Concomitant]
     Route: 065
  4. LIPITOR [Concomitant]
     Route: 065
  5. ESTRADIOL [Concomitant]
     Route: 065
  6. ASPIRIN [Concomitant]
     Route: 065
  7. LOPRESSOR [Concomitant]
     Route: 065

REACTIONS (7)
  - BLOOD THYROID STIMULATING HORMONE INCREASED [None]
  - BURSITIS [None]
  - CONFUSION POSTOPERATIVE [None]
  - FEMUR FRACTURE [None]
  - HAEMATOCRIT DECREASED [None]
  - HAEMATURIA [None]
  - SUPRAVENTRICULAR TACHYCARDIA [None]
